FAERS Safety Report 8837661 (Version 2)
Quarter: 2012Q4

REPORT INFORMATION
  Report Type: 
  Country: US (occurrence: US)
  Receive Date: 20121012
  Receipt Date: 20121026
  Transmission Date: 20130627
  Serious: Yes (Other)
  Sender: FDA-Public Use
  Company Number: PHHY2012US089786

PATIENT
  Age: 48 Year
  Sex: Female
  Weight: 100 kg

DRUGS (28)
  1. GILENYA [Suspect]
     Indication: MULTIPLE SCLEROSIS
     Dosage: 0.5 mg, QD
     Route: 048
     Dates: start: 20101102, end: 20120605
  2. DIAZEPAM [Concomitant]
     Dosage: 5 mg, UNK
     Dates: start: 20110829
  3. CHERATUSSIN AC [Concomitant]
     Dosage: UNK UKN, UNK
     Dates: start: 20101119
  4. DOXYCYCLINE HYCLATE [Concomitant]
     Dosage: UNK UKN, UNK
     Dates: start: 20110804
  5. FLOVENT [Concomitant]
  6. HYDROMORPHONE HYDROCHLORIDE [Concomitant]
     Dosage: UNK UKN, UNK
     Dates: start: 20110824
  7. ACETAMINOPHEN W/HYDROCODONE [Concomitant]
     Dosage: UNK UKN, UNK
     Dates: start: 20110829
  8. LORAZEPAM [Concomitant]
     Dosage: UNK UKN, UNK
     Dates: start: 20111001
  9. NAFTIN [Concomitant]
     Dosage: UNK UKN, UNK
     Dates: start: 20101109
  10. ACETAMINOPHEN W/OXYCODONE [Concomitant]
     Dosage: UNK UKN, UNK
     Dates: start: 20110804
  11. PROAIR HFA [Concomitant]
     Dosage: UNK UKN, UNK
     Dates: start: 20101119
  12. SINGULAIR [Concomitant]
     Dosage: 10 mg, QD
     Dates: start: 20110701
  13. SULFAMETHOXAZOLE W/TRIMETHOPRIM [Concomitant]
     Dosage: UNK UKN, UNK
     Dates: start: 20110717
  14. VESICARE [Concomitant]
     Dosage: 10 mg, QD
     Dates: start: 20060412, end: 20110614
  15. TAMOXIFEN [Concomitant]
  16. ANASTROZOLE [Concomitant]
     Dosage: 1 mg, QD
  17. ATIVAN [Concomitant]
     Dosage: 0.5 mg, PRN
  18. LIPITOR [Concomitant]
     Dosage: 20 mg, QD
  19. ZOLPIDEM [Concomitant]
  20. CALCIUM WITH VITAMIN D [Concomitant]
     Dosage: UNK
  21. FISH OIL [Concomitant]
     Dosage: 1000 mg, QD
  22. MULTIVITAMIN [Concomitant]
     Dosage: UNK
  23. VITAMIN D [Concomitant]
     Dosage: 2000 U, QD
  24. ASTELIN [Concomitant]
     Dates: start: 2006
  25. EPIPEN [Concomitant]
     Dates: start: 2009
  26. NASONEX [Concomitant]
     Dosage: UNK
     Dates: start: 201106
  27. VITAMIN D3 [Concomitant]
     Dosage: UNK U, QD
     Dates: start: 201001
  28. NEXIUM [Concomitant]
     Dosage: 40 mg, QD
     Dates: start: 201106

REACTIONS (9)
  - Follicle centre lymphoma, follicular grade I, II, III [Unknown]
  - Ovarian cyst [Unknown]
  - Uterine leiomyoma [Unknown]
  - Menorrhagia [Unknown]
  - Adenomyosis [Unknown]
  - Cervicitis [Unknown]
  - Dysfunctional uterine bleeding [Unknown]
  - Stress [Unknown]
  - Fatigue [Unknown]
